FAERS Safety Report 23769748 (Version 1)
Quarter: 2024Q2

REPORT INFORMATION
  Report Type: Spontaneous
  Country: US (occurrence: None)
  Receive Date: 20240421
  Receipt Date: 20240421
  Transmission Date: 20240715
  Serious: Yes (Life-Threatening, Hospitalization)
  Sender: FDA-Public Use
  Company Number: None

PATIENT
  Age: 75 Year
  Sex: Male
  Weight: 128 kg

DRUGS (3)
  1. NIRMATRELVIR\RITONAVIR [Suspect]
     Active Substance: NIRMATRELVIR\RITONAVIR
     Dates: start: 20230627, end: 20230630
  2. TACROLIMUS [Suspect]
     Active Substance: TACROLIMUS
     Dosage: 1MG BID PO
     Route: 048
  3. SIMVASTATIN [Suspect]
     Active Substance: SIMVASTATIN

REACTIONS (8)
  - Drug interaction [None]
  - Confusional state [None]
  - Blood creatinine increased [None]
  - Oedema [None]
  - Hyponatraemia [None]
  - Acute kidney injury [None]
  - Respiratory failure [None]
  - Tachypnoea [None]

NARRATIVE: CASE EVENT DATE: 20230627
